FAERS Safety Report 17395732 (Version 2)
Quarter: 2020Q1

REPORT INFORMATION
  Report Type: Spontaneous
  Country: US (occurrence: US)
  Receive Date: 20200210
  Receipt Date: 20200302
  Transmission Date: 20200409
  Serious: No
  Sender: FDA-Public Use
  Company Number: US-ASTRAZENECA-2020SE17510

PATIENT
  Age: 54 Year
  Sex: Male
  Weight: 131.5 kg

DRUGS (2)
  1. INSULIN [Concomitant]
     Active Substance: INSULIN NOS
     Dosage: FOUR TIMES A DAY
  2. BYDUREON BCISE [Suspect]
     Active Substance: EXENATIDE
     Indication: TYPE 2 DIABETES MELLITUS
     Route: 058
     Dates: start: 2019

REACTIONS (5)
  - Injection site bruising [Unknown]
  - Wrong technique in device usage process [Unknown]
  - Injection site pain [Unknown]
  - Injection site nodule [Unknown]
  - Device malfunction [Unknown]

NARRATIVE: CASE EVENT DATE: 2019
